FAERS Safety Report 5622935-4 (Version None)
Quarter: 2008Q1

REPORT INFORMATION
  Report Type: 
  Country: None (occurrence: None)
  Receive Date: 20080206
  Receipt Date: 20080128
  Transmission Date: 20080703
  Serious: Yes (Hospitalization)
  Sender: FDA-Public Use
  Company Number: 062-21880-07110993

PATIENT
  Sex: Male

DRUGS (18)
  1. REVLIMID [Suspect]
     Indication: MULTIPLE MYELOMA
     Dosage: ORAL
     Route: 048
     Dates: start: 20071113
  2. DEXAMETHASONE TAB [Concomitant]
  3. TAMSULOSIN HCL [Concomitant]
  4. DIOVAN [Concomitant]
  5. NEXIUM [Concomitant]
  6. CIPRO [Concomitant]
  7. MOVICOL (NULYTELY) [Concomitant]
  8. ARANESP [Concomitant]
  9. FENTANYL [Concomitant]
  10. FURO (FUROSEMIDE) [Concomitant]
  11. ACETYLSALICYLIC ACID SRT [Concomitant]
  12. LACTULOSE [Concomitant]
  13. NEBIVOLOL HCL [Concomitant]
  14. DIPYRONE TAB [Concomitant]
  15. ACETAMINOPHEN [Concomitant]
  16. SEVREDIOL (MORPHINE SULFATE) [Concomitant]
  17. MCP (METOCLOPRAMIDE HYDROCHLORIDE) (DROPS) [Concomitant]
  18. SIMVAHEXAL(SIMVASTATIN) [Concomitant]

REACTIONS (9)
  - ACTIVITIES OF DAILY LIVING IMPAIRED [None]
  - BLOOD PHOSPHORUS DECREASED [None]
  - BLOOD POTASSIUM DECREASED [None]
  - DEHYDRATION [None]
  - DIARRHOEA [None]
  - EPILEPSY [None]
  - PARKINSONISM [None]
  - RESTLESSNESS [None]
  - VIRAL INFECTION [None]
